FAERS Safety Report 7082677-8 (Version None)
Quarter: 2010Q4

REPORT INFORMATION
  Report Type: 
  Country: None (occurrence: None)
  Receive Date: 20101026
  Receipt Date: 20101011
  Transmission Date: 20110411
  Serious: Yes (Disabling)
  Sender: FDA-Public Use
  Company Number: 1000016867

PATIENT
  Age: 47 Year
  Sex: Female
  Weight: 51 kg

DRUGS (2)
  1. ESCITALOPRAM (ESCITALOPRAM OXALATE) (TABLETS) [Suspect]
     Indication: ANXIETY
     Dosage: 10 MG (10 MG, 1 IN 1 D), ORAL
     Route: 048
     Dates: start: 20100501, end: 20100901
  2. ESCITALOPRAM (ESCITALOPRAM OCALATE) (TABLETS) [Suspect]
     Indication: ANXIETY
     Dosage: 7.5 MG (7.5 MG, 1 IN 1 D), ORAL
     Route: 048
     Dates: start: 20100901

REACTIONS (4)
  - COGNITIVE DISORDER [None]
  - DISTURBANCE IN ATTENTION [None]
  - HYPERSOMNIA [None]
  - MEMORY IMPAIRMENT [None]
